FAERS Safety Report 25786956 (Version 2)
Quarter: 2025Q4

REPORT INFORMATION
  Report Type: Spontaneous
  Country: NZ (occurrence: NZ)
  Receive Date: 20250910
  Receipt Date: 20251024
  Transmission Date: 20260117
  Serious: No
  Sender: NOVO NORDISK
  Company Number: NZ-NOVOPROD-1513098

PATIENT
  Age: 49 Year
  Sex: Female

DRUGS (1)
  1. WEGOVY [Suspect]
     Active Substance: SEMAGLUTIDE
     Indication: Weight control
     Dosage: 1 MG, QW
     Route: 058
     Dates: start: 20250808, end: 20250808

REACTIONS (3)
  - Rectal haemorrhage [Not Recovered/Not Resolved]
  - Abdominal pain [Not Recovered/Not Resolved]
  - Nausea [Unknown]

NARRATIVE: CASE EVENT DATE: 20250811
